FAERS Safety Report 11004283 (Version 2)
Quarter: 2015Q2

REPORT INFORMATION
  Report Type: Spontaneous
  Country: AR (occurrence: AR)
  Receive Date: 20150409
  Receipt Date: 20150413
  Transmission Date: 20150821
  Serious: Yes (Hospitalization)
  Sender: FDA-Public Use
  Company Number: AR-ASTRAZENECA-2015SE31157

PATIENT
  Age: 38 Year
  Sex: Female

DRUGS (1)
  1. CAPRELSA [Suspect]
     Active Substance: VANDETANIB
     Dosage: EVERY DAY
     Route: 048
     Dates: start: 201403, end: 20150401

REACTIONS (3)
  - Intestinal perforation [Not Recovered/Not Resolved]
  - Ovarian necrosis [Unknown]
  - Peritonitis [Not Recovered/Not Resolved]

NARRATIVE: CASE EVENT DATE: 20150401
